FAERS Safety Report 18324119 (Version 2)
Quarter: 2022Q1

REPORT INFORMATION
  Report Type: Spontaneous
  Country: US (occurrence: US)
  Receive Date: 20200929
  Receipt Date: 20220201
  Transmission Date: 20220423
  Serious: Yes (Hospitalization, Other)
  Sender: FDA-Public Use
  Company Number: US-GLAXOSMITHKLINE-US2020GSK194210

PATIENT
  Sex: Male

DRUGS (5)
  1. ZANTAC [Suspect]
     Active Substance: RANITIDINE HYDROCHLORIDE
     Indication: Product used for unknown indication
     Dosage: UNK
     Route: 048
  2. ZANTAC [Suspect]
     Active Substance: RANITIDINE HYDROCHLORIDE
     Indication: Gastrooesophageal reflux disease
     Dosage: UNK
     Route: 065
     Dates: start: 1983, end: 1995
  3. ZANTAC [Suspect]
     Active Substance: RANITIDINE HYDROCHLORIDE
     Dosage: UNK
     Route: 065
     Dates: start: 1995, end: 2012
  4. ZANTAC [Suspect]
     Active Substance: RANITIDINE HYDROCHLORIDE
     Indication: Gastrooesophageal reflux disease
     Dosage: UNK
     Route: 065
     Dates: start: 1983, end: 1995
  5. ZANTAC [Suspect]
     Active Substance: RANITIDINE HYDROCHLORIDE
     Dosage: UNK
     Route: 065
     Dates: start: 1995, end: 2012

REACTIONS (17)
  - Prostatic mass [Unknown]
  - Urinary incontinence [Unknown]
  - Prostate cancer [Unknown]
  - Prostate cancer stage 0 [Unknown]
  - Prostatitis [Unknown]
  - Erectile dysfunction [Unknown]
  - Prostatomegaly [Unknown]
  - Benign prostatic hyperplasia [Unknown]
  - Urinary tract disorder [Unknown]
  - Micturition disorder [Unknown]
  - Nocturia [Unknown]
  - Lower urinary tract symptoms [Unknown]
  - Organic erectile dysfunction [Unknown]
  - Haematuria [Unknown]
  - Pollakiuria [Unknown]
  - Hypertonic bladder [Unknown]
  - Bladder spasm [Unknown]
